FAERS Safety Report 9929273 (Version 1)
Quarter: 2014Q1

REPORT INFORMATION
  Report Type: Spontaneous
  Country: US (occurrence: None)
  Receive Date: 20140109
  Receipt Date: 20140109
  Transmission Date: 20141002
  Serious: Yes (Other)
  Sender: FDA-Public Use
  Company Number: 373496

PATIENT
  Age: 74 Year
  Sex: Male
  Weight: 91.2 kg

DRUGS (1)
  1. LEVEMIR [Suspect]
     Indication: DIABETES MELLITUS
     Route: 058
     Dates: start: 20130306

REACTIONS (2)
  - Drug ineffective [None]
  - Blood glucose increased [None]
